FAERS Safety Report 5120310-2 (Version None)
Quarter: 2006Q4

REPORT INFORMATION
  Report Type: 
  Country: None (occurrence: None)
  Receive Date: 20061004
  Receipt Date: 20060925
  Transmission Date: 20070319
  Serious: Yes (Hospitalization)
  Sender: FDA-Public Use
  Company Number: DE-JNJFOC-20060905963

PATIENT
  Age: 45 Year
  Sex: Male

DRUGS (1)
  1. RISPERDAL CONSTA [Suspect]
     Indication: DRUG USE FOR UNKNOWN INDICATION
     Dosage: 6 OR 7 INJECTIONS
     Route: 030

REACTIONS (2)
  - CEREBROVASCULAR ACCIDENT [None]
  - FACIAL PALSY [None]
